FAERS Safety Report 9963382 (Version 2)
Quarter: 2014Q1

REPORT INFORMATION
  Report Type: Spontaneous
  Country: US (occurrence: US)
  Receive Date: 20140305
  Receipt Date: 20140305
  Transmission Date: 20141002
  Serious: Yes (Hospitalization, Other)
  Sender: FDA-Public Use
  Company Number: US-BRISTOL-MYERS SQUIBB COMPANY-20141974

PATIENT
  Age: 54 Year
  Sex: Female
  Weight: 113.38 kg

DRUGS (5)
  1. BYETTA [Suspect]
     Indication: TYPE 1 DIABETES MELLITUS
     Route: 058
     Dates: start: 20120709, end: 20140131
  2. NAPROXEN [Suspect]
  3. TRAMADOL [Suspect]
  4. LANTUS [Concomitant]
     Dosage: LANUS 20 UNITS
  5. HUMALOG [Concomitant]

REACTIONS (6)
  - Fall [Unknown]
  - Blood glucose increased [Unknown]
  - Nausea [Unknown]
  - Abdominal pain [Unknown]
  - Back pain [Unknown]
  - Asthenia [Unknown]
